FAERS Safety Report 4750832-5 (Version None)
Quarter: 2005Q3

REPORT INFORMATION
  Report Type: 
  Country: None (occurrence: None)
  Receive Date: 20050822
  Receipt Date: 20050811
  Transmission Date: 20060218
  Serious: Yes (Hospitalization)
  Sender: FDA-Public Use
  Company Number: 163-20785-05080131

PATIENT
  Age: 49 Year
  Sex: Male

DRUGS (3)
  1. THALOMID [Suspect]
     Indication: MULTIPLE MYELOMA
     Dosage: SEE IMAGE
     Route: 048
     Dates: start: 20000101, end: 20010101
  2. THALOMID [Suspect]
     Indication: MULTIPLE MYELOMA
     Dosage: SEE IMAGE
     Route: 048
     Dates: start: 20040101
  3. VELCADE [Concomitant]

REACTIONS (5)
  - NEUROPATHY [None]
  - OSTEOMYELITIS [None]
  - POSTOPERATIVE INFECTION [None]
  - SOMNOLENCE [None]
  - VERTEBROPLASTY [None]
